FAERS Safety Report 24855011 (Version 2)
Quarter: 2025Q4

REPORT INFORMATION
  Report Type: Report from Study
  Country: CA (occurrence: CA)
  Receive Date: 20250117
  Receipt Date: 20251008
  Transmission Date: 20260118
  Serious: Yes (Other)
  Sender: SANDOZ
  Company Number: CA-SANDOZ-SDZ2024CA000710

PATIENT
  Sex: Female

DRUGS (1)
  1. ERELZI [Suspect]
     Active Substance: ETANERCEPT-SZZS
     Indication: Rheumatoid arthritis
     Dosage: 50 MG, QW
     Route: 058
     Dates: start: 20231016

REACTIONS (12)
  - Surgery [Unknown]
  - Spinal disorder [Unknown]
  - Pneumonia [Unknown]
  - Nasopharyngitis [Unknown]
  - Loss of personal independence in daily activities [Unknown]
  - General physical health deterioration [Unknown]
  - Gait disturbance [Unknown]
  - Pain in extremity [Unknown]
  - Arthralgia [Unknown]
  - Eye infection [Unknown]
  - Urinary tract infection [Unknown]
  - Bronchitis [Unknown]
